FAERS Safety Report 15665931 (Version 8)
Quarter: 2019Q1

REPORT INFORMATION
  Report Type: Report from Study
  Country: DE (occurrence: DE)
  Receive Date: 20181128
  Receipt Date: 20190327
  Transmission Date: 20190417
  Serious: Yes (Other)
  Sender: FDA-Public Use
  Company Number: PHHY2018DE165567

PATIENT
  Sex: Female
  Weight: 55 kg

DRUGS (9)
  1. KISQALI [Suspect]
     Active Substance: RIBOCICLIB
     Dosage: 400 MG, QD (21 DAYS ON /7 DAYS OFF)
     Route: 048
     Dates: start: 20181019, end: 20181115
  2. KISQALI [Suspect]
     Active Substance: RIBOCICLIB
     Dosage: 400 MG (16 DAYS ON /7 DAYS OFF), UNK
     Route: 048
     Dates: start: 20181121, end: 20181213
  3. KISQALI [Suspect]
     Active Substance: RIBOCICLIB
     Dosage: 400 MG (21 DAYS ON /7 DAYS OFF), UNK
     Route: 048
     Dates: start: 20181221, end: 20190117
  4. KISQALI [Suspect]
     Active Substance: RIBOCICLIB
     Dosage: 400 MG (21 DAYS ON /7 DAYS OFF), UNK
     Route: 048
     Dates: start: 20190222
  5. KISQALI [Suspect]
     Active Substance: RIBOCICLIB
     Dosage: 400 MG, QD (21 DAYS ON /7 DAYS OFF)
     Route: 048
     Dates: start: 20180907, end: 20180920
  6. KISQALI [Suspect]
     Active Substance: RIBOCICLIB
     Indication: BREAST CANCER METASTATIC
     Dosage: 600 MG, QD (21 DAYS ON /7 DAYS OFF)
     Route: 048
     Dates: start: 20180824, end: 20180906
  7. LETROZOLE. [Suspect]
     Active Substance: LETROZOLE
     Indication: BREAST CANCER METASTATIC
     Dosage: 2.5 MG, QD
     Route: 048
     Dates: start: 20180824
  8. KISQALI [Suspect]
     Active Substance: RIBOCICLIB
     Dosage: 400 MG, QD (21 DAYS ON /7 DAYS OFF)
     Route: 048
     Dates: start: 20180921, end: 20181018
  9. KISQALI [Suspect]
     Active Substance: RIBOCICLIB
     Dosage: 400 MG (21 DAYS ON /7 DAYS OFF), UNK
     Route: 048
     Dates: start: 20190118, end: 20190214

REACTIONS (7)
  - Basophil count increased [Unknown]
  - Neutropenia [Recovered/Resolved]
  - Leukopenia [Recovered/Resolved]
  - Haemoglobin decreased [Unknown]
  - Peripheral swelling [Not Recovered/Not Resolved]
  - Leukopenia [Recovered/Resolved]
  - Neutropenia [Recovered/Resolved]

NARRATIVE: CASE EVENT DATE: 20181116
